FAERS Safety Report 9405774 (Version 3)
Quarter: 2013Q4

REPORT INFORMATION
  Report Type: Spontaneous
  Country: US (occurrence: US)
  Receive Date: 20130717
  Receipt Date: 20131030
  Transmission Date: 20140711
  Serious: Yes (Hospitalization)
  Sender: FDA-Public Use
  Company Number: US-GLAXOSMITHKLINE-A1001448A

PATIENT
  Age: 55 Year
  Sex: Female
  Weight: 91.8 kg

DRUGS (1)
  1. AVANDIA [Suspect]
     Indication: DIABETES MELLITUS
     Dosage: 4MG PER DAY
     Route: 048
     Dates: start: 20000427, end: 20010424

REACTIONS (7)
  - Myocardial infarction [Unknown]
  - Cardiac failure congestive [Unknown]
  - Ventricular tachycardia [Unknown]
  - Congestive cardiomyopathy [Unknown]
  - Implantable defibrillator insertion [Unknown]
  - Implantable defibrillator replacement [Unknown]
  - Cardiac disorder [Unknown]
